FAERS Safety Report 6421476-4 (Version None)
Quarter: 2009Q4

REPORT INFORMATION
  Report Type: 
  Country: None (occurrence: None)
  Receive Date: 20091030
  Receipt Date: 20091021
  Transmission Date: 20100525
  Serious: Yes (Other)
  Sender: FDA-Public Use
  Company Number: CN-PFIZER INC-2009286092

PATIENT
  Age: 65 Year

DRUGS (2)
  1. SULPERAZON [Suspect]
     Indication: LUNG INFECTION
     Dosage: UNK
     Route: 042
  2. FORTUM [Concomitant]
     Indication: LUNG INFECTION

REACTIONS (3)
  - CHRONIC OBSTRUCTIVE PULMONARY DISEASE [None]
  - CONDITION AGGRAVATED [None]
  - PRURITUS GENERALISED [None]
